FAERS Safety Report 5026364-6 (Version None)
Quarter: 2006Q2

REPORT INFORMATION
  Report Type: 
  Country: None (occurrence: None)
  Receive Date: 20060615
  Receipt Date: 20060531
  Transmission Date: 20061013
  Serious: Yes (Hospitalization)
  Sender: FDA-Public Use
  Company Number: HQWYE028508JUN06

PATIENT
  Sex: Female
  Weight: 29.4 kg

DRUGS (5)
  1. ENBREL [Suspect]
     Indication: JUVENILE ARTHRITIS
     Dosage: 0.4 MG/KG X 1 DOSE
     Route: 058
     Dates: start: 20060523, end: 20060523
  2. OMEPRAZOLE [Concomitant]
     Indication: PROPHYLAXIS
     Route: 048
  3. MELOXICAM [Concomitant]
     Indication: PAIN
     Route: 048
  4. DEFLAZACORT [Concomitant]
     Indication: IMMUNOSUPPRESSION
     Route: 048
  5. LEUCOVORIN CALCIUM [Concomitant]
     Route: 048

REACTIONS (4)
  - CHILLS [None]
  - HYPERAESTHESIA [None]
  - MYALGIA [None]
  - PYREXIA [None]
